FAERS Safety Report 9967100 (Version 2)
Quarter: 2014Q2

REPORT INFORMATION
  Report Type: Spontaneous
  Country: US (occurrence: US)
  Receive Date: 20140305
  Receipt Date: 20140415
  Transmission Date: 20141212
  Serious: Yes (Hospitalization)
  Sender: FDA-Public Use
  Company Number: US-ROCHE-1356808

PATIENT
  Sex: Female

DRUGS (6)
  1. KADCYLA [Suspect]
     Indication: BREAST CANCER
     Dosage: LAST DOSE OF THERAPY: 29/JAN/2014
     Route: 065
     Dates: start: 20130619, end: 20140129
  2. ACARBOSE [Concomitant]
     Route: 048
  3. AMLODIPINE BESYLATE [Concomitant]
     Route: 048
  4. CALCIUM CARBONATE [Concomitant]
     Route: 048
  5. LORAZEPAM [Concomitant]
     Route: 048
  6. CHOLECALCIFEROL [Concomitant]
     Route: 048

REACTIONS (1)
  - Hepatotoxicity [Unknown]
